FAERS Safety Report 10931278 (Version 4)
Quarter: 2016Q2

REPORT INFORMATION
  Report Type: Other
  Country: US (occurrence: US)
  Receive Date: 20150316
  Receipt Date: 20160427
  Transmission Date: 20160815
  Serious: Yes (Other)
  Sender: FDA-Public Use
  Company Number: US-003170

PATIENT
  Age: 12 Year
  Sex: Female

DRUGS (9)
  1. AZITHROMYCIN ANHYDROUS. [Suspect]
     Active Substance: AZITHROMYCIN ANHYDROUS
     Route: 065
     Dates: start: 201307, end: 2013
  2. AMPHOTERICIN B. [Concomitant]
     Active Substance: AMPHOTERICIN B
     Route: 037
     Dates: start: 2013, end: 2013
  3. IMPAVIDO [Suspect]
     Active Substance: MILTEFOSINE
     Indication: MENINGOENCEPHALITIS AMOEBIC
     Route: 065
     Dates: start: 201307, end: 2013
  4. RIFAMPIN. [Suspect]
     Active Substance: RIFAMPIN
     Route: 065
     Dates: start: 201307, end: 2013
  5. DEXAMETHASONE. [Concomitant]
     Active Substance: DEXAMETHASONE
     Route: 065
     Dates: start: 201307
  6. FLUCONAZOLE. [Suspect]
     Active Substance: FLUCONAZOLE
     Dates: start: 201307, end: 2013
  7. AMPHOTERICIN B. [Concomitant]
     Active Substance: AMPHOTERICIN B
     Route: 042
     Dates: start: 201307
  8. AMPHOTERICIN B. [Concomitant]
     Active Substance: AMPHOTERICIN B
     Route: 037
     Dates: start: 2013, end: 2013
  9. AMPHOTERICIN B. [Concomitant]
     Active Substance: AMPHOTERICIN B
     Route: 042
     Dates: start: 20130719

REACTIONS (6)
  - Pancreatitis [Recovered/Resolved]
  - Abdominal pain upper [Recovered/Resolved]
  - Vomiting [Recovered/Resolved]
  - Nausea [Recovered/Resolved]
  - Therapeutic response unexpected [Recovered/Resolved]
  - Off label use [Recovered/Resolved]
